FAERS Safety Report 9133071 (Version 1)
Quarter: 2013Q1

REPORT INFORMATION
  Report Type: Spontaneous
  Country: US (occurrence: US)
  Receive Date: 20130107
  Receipt Date: 20130107
  Transmission Date: 20140127
  Serious: Yes (Death, Hospitalization)
  Sender: FDA-Public Use
  Company Number: US-ROXANE LABORATORIES, INC.-2013-RO-00009RO

PATIENT
  Age: 75 Year
  Sex: Male

DRUGS (10)
  1. FLUCONAZOLE [Suspect]
     Indication: ANTIFUNGAL PROPHYLAXIS
     Dosage: 200 MG
  2. VALACYCLOVIR HYDROCHLORIDE [Suspect]
     Indication: ANTIFUNGAL PROPHYLAXIS
     Dosage: 500 MG
  3. FLUDARABINE [Suspect]
     Indication: SALVAGE THERAPY
  4. CYTARABINE [Suspect]
     Indication: SALVAGE THERAPY
  5. LEVOFLOXACIN [Suspect]
     Dosage: 500 MG
  6. VORICONAZOLE [Suspect]
     Indication: ANTIFUNGAL PROPHYLAXIS
     Dosage: 400 MG
  7. MEROPENEM [Suspect]
     Indication: EVIDENCE BASED TREATMENT
     Route: 042
  8. DAPTOMYCIN [Suspect]
     Indication: EVIDENCE BASED TREATMENT
     Route: 042
  9. POSACONAZOLE [Suspect]
     Indication: CANDIDA INFECTION
     Dosage: 800 MG
     Route: 048
  10. CASPOFUNGIN [Suspect]
     Indication: CANDIDA INFECTION
     Route: 042

REACTIONS (5)
  - Septic shock [Fatal]
  - Arthritis fungal [Unknown]
  - Candida infection [Unknown]
  - Cellulitis [Unknown]
  - Bronchopneumonia [Unknown]
